FAERS Safety Report 7412714-X (Version None)
Quarter: 2011Q2

REPORT INFORMATION
  Report Type: 
  Country: None (occurrence: None)
  Receive Date: 20110413
  Receipt Date: 20110325
  Transmission Date: 20111010
  Serious: Yes (Death, Disabling, Other)
  Sender: FDA-Public Use
  Company Number: A0864044A

PATIENT
  Age: 77 Year
  Sex: Female

DRUGS (4)
  1. PROMACTA [Suspect]
     Indication: THROMBOCYTOPENIA
     Dosage: 50MG ALTERNATE DAYS
     Route: 048
     Dates: start: 20100108, end: 20101119
  2. PLATELETS [Concomitant]
     Indication: THROMBOCYTOPENIA
  3. HYDREA [Suspect]
  4. ALDACTONE [Suspect]

REACTIONS (20)
  - CACHEXIA [None]
  - ATELECTASIS [None]
  - PERICARDIAL EFFUSION [None]
  - OSTEOPENIA [None]
  - FALL [None]
  - DISEASE PROGRESSION [None]
  - LIVER FUNCTION TEST ABNORMAL [None]
  - FEMUR FRACTURE [None]
  - HIP FRACTURE [None]
  - ATRIAL FIBRILLATION [None]
  - RIB FRACTURE [None]
  - FATIGUE [None]
  - HEPATIC STEATOSIS [None]
  - LYMPHADENOPATHY [None]
  - SPLENOMEGALY [None]
  - ASCITES [None]
  - CHRONIC MYELOID LEUKAEMIA [None]
  - OEDEMA [None]
  - URINARY TRACT INFECTION [None]
  - PLEURAL EFFUSION [None]
